FAERS Safety Report 7789822-7 (Version None)
Quarter: 2011Q3

REPORT INFORMATION
  Report Type: 
  Country: None (occurrence: None)
  Receive Date: 20110930
  Receipt Date: 20101214
  Transmission Date: 20111222
  Serious: No
  Sender: FDA-Public Use
  Company Number: US-ASTRAZENECA-2009SE32198

PATIENT
  Age: 64 Year
  Sex: Female

DRUGS (1)
  1. ARIMIDEX [Suspect]
     Indication: BREAST CANCER
     Route: 048
     Dates: start: 20050601, end: 20101208

REACTIONS (8)
  - INCISION SITE PAIN [None]
  - FATIGUE [None]
  - HAEMOPTYSIS [None]
  - STOMATITIS [None]
  - DRUG DOSE OMISSION [None]
  - HEADACHE [None]
  - DIZZINESS [None]
  - ASTHENIA [None]
